FAERS Safety Report 13324325 (Version 1)
Quarter: 2017Q1

REPORT INFORMATION
  Report Type: Spontaneous
  Country: IT (occurrence: IT)
  Receive Date: 20170310
  Receipt Date: 20170310
  Transmission Date: 20170428
  Serious: Yes (Hospitalization, Other)
  Sender: FDA-Public Use
  Company Number: IT-MYLANLABS-2017M1012157

PATIENT

DRUGS (5)
  1. FOLINIC ACID [Concomitant]
     Active Substance: LEUCOVORIN
     Indication: ADENOCARCINOMA OF COLON
     Dosage: 200 MG/M2, CYCLE
     Route: 042
  2. FLUOROURACIL. [Concomitant]
     Active Substance: FLUOROURACIL
     Indication: ADENOCARCINOMA OF COLON
     Dosage: 400 MG/M2, CYCLE
     Route: 040
  3. OXALIPLATIN. [Suspect]
     Active Substance: OXALIPLATIN
     Indication: ADENOCARCINOMA OF COLON
     Dosage: 85 MG/M2, CYCLE
     Route: 041
     Dates: start: 20150812, end: 20150923
  4. FLUOROURACIL. [Concomitant]
     Active Substance: FLUOROURACIL
     Dosage: 600 MG/M2, UNK
  5. CETUXIMAB. [Concomitant]
     Active Substance: CETUXIMAB
     Indication: ADENOCARCINOMA OF COLON

REACTIONS (7)
  - Anuria [Unknown]
  - Abdominal pain [Unknown]
  - Renal failure [Unknown]
  - Haemolytic anaemia [Unknown]
  - Hyperbilirubinaemia [Unknown]
  - Pulmonary oedema [Unknown]
  - Haemolytic uraemic syndrome [Recovering/Resolving]

NARRATIVE: CASE EVENT DATE: 20151015
